FAERS Safety Report 16051867 (Version 4)
Quarter: 2019Q1

REPORT INFORMATION
  Report Type: Report from Study
  Country: US (occurrence: US)
  Receive Date: 20190308
  Receipt Date: 20190328
  Transmission Date: 20190418
  Serious: Yes (Hospitalization, Disabling, Other)
  Sender: FDA-Public Use
  Company Number: US-GILEAD-2019-0395523

PATIENT
  Age: 28 Year
  Sex: Female
  Weight: 114 kg

DRUGS (5)
  1. LITHIUM. [Concomitant]
     Active Substance: LITHIUM
  2. AMBRISENTAN [Suspect]
     Active Substance: AMBRISENTAN
     Indication: PULMONARY HYPERTENSION
     Dosage: 5 MG, QD
     Route: 065
     Dates: start: 20190227
  3. LORAZEPAM. [Concomitant]
     Active Substance: LORAZEPAM
  4. FUROSEMIDE. [Concomitant]
     Active Substance: FUROSEMIDE
  5. GABAPENTIN. [Concomitant]
     Active Substance: GABAPENTIN

REACTIONS (13)
  - Seizure [Unknown]
  - Headache [Recovered/Resolved]
  - Abdominal discomfort [Unknown]
  - Migraine [Recovered/Resolved]
  - Weight increased [Unknown]
  - Thirst [Unknown]
  - Peripheral swelling [Not Recovered/Not Resolved]
  - Chest discomfort [Recovered/Resolved]
  - Liver disorder [Unknown]
  - Palpitations [Recovered/Resolved]
  - Palpitations [Recovered/Resolved]
  - Tremor [Unknown]
  - Headache [Unknown]

NARRATIVE: CASE EVENT DATE: 20190306
